FAERS Safety Report 8251143-6 (Version None)
Quarter: 2012Q2

REPORT INFORMATION
  Report Type: 
  Country: None (occurrence: None)
  Receive Date: 20120402
  Receipt Date: 20120326
  Transmission Date: 20120825
  Serious: Yes (Hospitalization, Other)
  Sender: FDA-Public Use
  Company Number: ES-UCBSA-053699

PATIENT
  Age: 52 Year
  Sex: Female
  Weight: 62 kg

DRUGS (5)
  1. ARAVA [Concomitant]
     Indication: RHEUMATOID ARTHRITIS
     Dosage: DOSE PER INTAKE:1 ; NUMBER OF INTAKES:1 ; TOTAL DAILY DOSE:10
     Route: 048
  2. PNEUMOCOCCAL VACCINE [Concomitant]
  3. INFLUENZA VACCINE [Concomitant]
  4. CIMZIA [Suspect]
     Indication: RHEUMATOID ARTHRITIS
     Dosage: UNKNOWN DOSE
     Route: 058
     Dates: start: 20111101, end: 20120101
  5. PREDNISONE [Concomitant]
     Route: 048

REACTIONS (2)
  - FOOT FRACTURE [None]
  - PNEUMONIA [None]
